FAERS Safety Report 12450353 (Version 1)
Quarter: 2016Q2

REPORT INFORMATION
  Report Type: Spontaneous
  Country: US (occurrence: None)
  Receive Date: 20160608
  Receipt Date: 20160608
  Transmission Date: 20160815
  Serious: Yes (Hospitalization, Disabling)
  Sender: FDA-Public Use
  Company Number: None

PATIENT
  Age: 0 Day
  Sex: Male
  Weight: 3.4 kg

DRUGS (1)
  1. GENTAMICIN. [Suspect]
     Active Substance: GENTAMICIN
     Indication: SEPSIS NEONATAL
     Dosage: INTO A VEIN
     Dates: start: 20131019, end: 20131021

REACTIONS (2)
  - Maternal drugs affecting foetus [None]
  - Deafness bilateral [None]

NARRATIVE: CASE EVENT DATE: 20131019
